FAERS Safety Report 5988826-4 (Version None)
Quarter: 2008Q4

REPORT INFORMATION
  Report Type: 
  Country: None (occurrence: None)
  Receive Date: 20081208
  Receipt Date: 20081208
  Transmission Date: 20090506
  Serious: Yes (Hospitalization)
  Sender: FDA-Public Use
  Company Number: None

PATIENT
  Sex: Female
  Weight: 68.9 kg

DRUGS (9)
  1. ESTRADIOL [Suspect]
     Indication: BREAST CANCER METASTATIC
     Dosage: 2MG THREE TIMES DAILY PO
     Route: 048
     Dates: start: 20080207, end: 20081202
  2. ZETIA [Concomitant]
  3. PRILOSEC [Concomitant]
  4. IBUPROFEN [Concomitant]
  5. GABAPENTIN [Concomitant]
  6. CITALOPRAM [Concomitant]
  7. FLUTICASONE PROPIONATE [Concomitant]
  8. CELEXA [Concomitant]
  9. FLOVENT [Concomitant]

REACTIONS (11)
  - ASTHENIA [None]
  - BLOOD CALCIUM INCREASED [None]
  - BLOOD POTASSIUM DECREASED [None]
  - FATIGUE [None]
  - LYMPHOEDEMA [None]
  - METASTASES TO BONE [None]
  - METASTASES TO LIVER [None]
  - PAIN IN EXTREMITY [None]
  - SUBCLAVIAN VEIN THROMBOSIS [None]
  - THIRST [None]
  - WEIGHT DECREASED [None]
